FAERS Safety Report 7525173-3 (Version None)
Quarter: 2011Q2

REPORT INFORMATION
  Report Type: 
  Country: None (occurrence: None)
  Receive Date: 20110526
  Receipt Date: 20110511
  Transmission Date: 20111010
  Serious: Yes (Hospitalization)
  Sender: FDA-Public Use
  Company Number: CIP11000556

PATIENT
  Age: 74 Year
  Sex: Female

DRUGS (26)
  1. FOSAMAX [Suspect]
     Indication: OSTEOPOROSIS
     Dosage: 70 MG ONCE WEEKLY, ORAL
     Route: 048
     Dates: end: 20100415
  2. MULTIVITAMIN /00097801/ (ASCORBIC ACID, CALCIUM PANTOTHENATE, ERGOCALC [Concomitant]
  3. ACTONEL [Suspect]
     Dosage: 75 MG TWO CONSECUTIVE DAYS MONTHLY, ORAL
     Route: 048
     Dates: start: 20081220, end: 20090402
  4. LOPRESSOR [Concomitant]
  5. ADVAIR HFA [Concomitant]
  6. CITRAL(CALCIUM CITRATE) [Concomitant]
  7. FOSAMAX PLUS D [Suspect]
     Dosage: ORAL
     Route: 048
     Dates: start: 20090402
  8. ZITHROMAX (VARICELLA VIRUS VACCINE, LIVE) [Concomitant]
  9. RELAFEN [Concomitant]
  10. ZOCOR [Concomitant]
  11. ACTONEL [Suspect]
     Dosage: 35 MG ONCE WEEKLY, ORAL
     Route: 048
     Dates: start: 20061017
  12. TOPROL-XL [Concomitant]
  13. LISINOPRIL [Concomitant]
  14. DOXYCYCLINE HYCLATE (DOXYCYCLINE HYCLATE) [Concomitant]
  15. VITAMIN E /00110501/ (TOCOPHEROL) [Concomitant]
  16. HYDROCHLOROTHIAZIDE [Concomitant]
  17. IBUPROFEN [Concomitant]
  18. LIPITOR [Concomitant]
  19. GLUCOSAMINE (GLUCOSAMINE) [Concomitant]
  20. KLONOPIN (CLONAXEPAM) [Concomitant]
  21. HUMIBID DM (DEXTROMETHOPRPHAN HYDROBROMIDE, GUAIFENESIN) [Concomitant]
  22. TESSALON [Concomitant]
  23. BEXTRA /01401501/ (VALDECOXIB) [Concomitant]
  24. MOBIC [Concomitant]
  25. NIACIN [Concomitant]
  26. VYTORIN [Concomitant]

REACTIONS (10)
  - FRACTURE DISPLACEMENT [None]
  - ARTHRALGIA [None]
  - FEMUR FRACTURE [None]
  - BURSITIS [None]
  - FRACTURE DELAYED UNION [None]
  - FRACTURE NONUNION [None]
  - STRESS FRACTURE [None]
  - THERAPEUTIC RESPONSE DECREASED [None]
  - FALL [None]
  - PAIN IN EXTREMITY [None]
